FAERS Safety Report 20059214 (Version 1)
Quarter: 2021Q4

REPORT INFORMATION
  Report Type: Spontaneous
  Country: US (occurrence: None)
  Receive Date: 20211111
  Receipt Date: 20211111
  Transmission Date: 20220303
  Serious: No
  Sender: FDA-Public Use
  Company Number: 2021A802360

PATIENT
  Age: 830 Month
  Sex: Male
  Weight: 127 kg

DRUGS (1)
  1. BUDESONIDE\FORMOTEROL\GLYCOPYRRONIUM [Suspect]
     Active Substance: BUDESONIDE\FORMOTEROL\GLYCOPYRRONIUM
     Indication: Chronic obstructive pulmonary disease
     Dosage: 160MCG/9MCG/4.8MCG, 2 PUFFS TWICE A DAY
     Route: 055
     Dates: start: 202103

REACTIONS (3)
  - Cough [Unknown]
  - Dysphonia [Unknown]
  - Device malfunction [Unknown]

NARRATIVE: CASE EVENT DATE: 20210801
